FAERS Safety Report 8524757-3 (Version None)
Quarter: 2012Q3

REPORT INFORMATION
  Report Type: 
  Country: None (occurrence: None)
  Receive Date: 20120720
  Receipt Date: 20120706
  Transmission Date: 20120928
  Serious: Yes (Hospitalization)
  Sender: FDA-Public Use
  Company Number: CN-ELI_LILLY_AND_COMPANY-CN201207003198

PATIENT
  Age: 74 Year
  Sex: Female

DRUGS (3)
  1. ZYPREXA [Suspect]
     Dosage: 5 MG, UNK
     Dates: start: 20120501, end: 20120615
  2. CALCIUM [Concomitant]
  3. ZYPREXA [Suspect]
     Indication: SLEEP DISORDER
     Dosage: 10 MG, UNK
     Dates: start: 20120415, end: 20120430

REACTIONS (3)
  - OFF LABEL USE [None]
  - PURPURA [None]
  - PLATELET COUNT DECREASED [None]
